FAERS Safety Report 9990356 (Version 1)
Quarter: 2014Q1

REPORT INFORMATION
  Report Type: Report from Study
  Country: US (occurrence: US)
  Receive Date: 20140310
  Receipt Date: 20140310
  Transmission Date: 20141002
  Serious: No
  Sender: FDA-Public Use
  Company Number: US-ABBVIE-13P-163-1135047-00

PATIENT
  Sex: Female
  Weight: 56.75 kg

DRUGS (3)
  1. HUMIRA [Suspect]
     Indication: CROHN^S DISEASE
     Dosage: 2
     Route: 058
     Dates: start: 2012, end: 201303
  2. PENTASA [Concomitant]
     Indication: CROHN^S DISEASE
  3. UNKNOWN MEDICATION [Concomitant]
     Indication: CROHN^S DISEASE
     Dosage: TIME RELEASE CAPSULE

REACTIONS (1)
  - Crohn^s disease [Not Recovered/Not Resolved]
